FAERS Safety Report 11150151 (Version 2)
Quarter: 2015Q3

REPORT INFORMATION
  Report Type: Spontaneous
  Country: CA (occurrence: CA)
  Receive Date: 20150529
  Receipt Date: 20150716
  Transmission Date: 20151125
  Serious: Yes (Other)
  Sender: FDA-Public Use
  Company Number: CA-ASTRAZENECA-2015SE41916

PATIENT
  Age: 67 Year
  Sex: Male

DRUGS (6)
  1. CRESTOR [Concomitant]
     Active Substance: ROSUVASTATIN CALCIUM
     Route: 048
  2. JANUMET XR [Concomitant]
     Active Substance: METFORMIN HYDROCHLORIDE\SITAGLIPTIN PHOSPHATE
     Dosage: 50MG/1000MG
  3. HYZAR [Concomitant]
     Dosage: 100MG/12.5MG
  4. FORXIGA [Suspect]
     Active Substance: DAPAGLIFLOZIN
     Route: 048
     Dates: start: 201503, end: 20150420
  5. GLYCOZIDE [Concomitant]
  6. NOVO NAH INSULIN [Concomitant]

REACTIONS (1)
  - Haematuria [Recovered/Resolved]
